FAERS Safety Report 19777272 (Version 1)
Quarter: 2021Q3

REPORT INFORMATION
  Report Type: Spontaneous
  Country: US (occurrence: US)
  Receive Date: 20210902
  Receipt Date: 20210902
  Transmission Date: 20211014
  Serious: No
  Sender: FDA-Public Use
  Company Number: US-CELGENEUS-USA-20210807276

PATIENT
  Sex: Male
  Weight: 58.57 kg

DRUGS (13)
  1. TAFINLAR [Suspect]
     Active Substance: DABRAFENIB MESYLATE
     Indication: PRODUCT USED FOR UNKNOWN INDICATION
     Route: 065
  2. REVLIMID [Suspect]
     Active Substance: LENALIDOMIDE
     Dosage: 5 ?10 MILLIGRAMS
     Route: 048
     Dates: start: 201512
  3. REVLIMID [Suspect]
     Active Substance: LENALIDOMIDE
     Dosage: 10?7.5 MILLIGRAMS
     Route: 048
     Dates: start: 201706
  4. REVLIMID [Suspect]
     Active Substance: LENALIDOMIDE
     Indication: PLASMA CELL MYELOMA
     Dosage: 25 MILLIGRAM
     Route: 048
     Dates: start: 201404
  5. REVLIMID [Suspect]
     Active Substance: LENALIDOMIDE
     Dosage: 10 ?7.5 MILLIGRAM
     Route: 048
     Dates: start: 201410
  6. REVLIMID [Suspect]
     Active Substance: LENALIDOMIDE
     Dosage: 10 MILLIGRAM
     Route: 048
     Dates: start: 20190101
  7. REVLIMID [Suspect]
     Active Substance: LENALIDOMIDE
     Dosage: 7.5?5 MILLIGRAMS
     Route: 048
     Dates: start: 201704
  8. REVLIMID [Suspect]
     Active Substance: LENALIDOMIDE
     Dosage: 5 MILLIGRAM
     Route: 048
     Dates: start: 202012
  9. ENOXAPARIN [Concomitant]
     Active Substance: ENOXAPARIN
     Indication: PRODUCT USED FOR UNKNOWN INDICATION
     Route: 065
  10. REVLIMID [Suspect]
     Active Substance: LENALIDOMIDE
     Dosage: 10?5 MILLIGRAMS
     Route: 048
     Dates: start: 201908
  11. TAFINLAR [Suspect]
     Active Substance: DABRAFENIB MESYLATE
     Dosage: LOWER DOSE
     Route: 065
  12. REVLIMID [Suspect]
     Active Substance: LENALIDOMIDE
     Dosage: 7.5?5 MILLIGRAMS
     Route: 048
     Dates: start: 201902
  13. POTASSIUM [Concomitant]
     Active Substance: POTASSIUM
     Indication: PRODUCT USED FOR UNKNOWN INDICATION
     Dosage: 595 (99) MG
     Route: 048

REACTIONS (2)
  - Plasma cell myeloma [Unknown]
  - Adverse drug reaction [Unknown]
